FAERS Safety Report 12552410 (Version 2)
Quarter: 2016Q3

REPORT INFORMATION
  Report Type: Spontaneous
  Country: US (occurrence: US)
  Receive Date: 20160713
  Receipt Date: 20160805
  Transmission Date: 20161109
  Serious: Yes (Hospitalization, Other)
  Sender: FDA-Public Use
  Company Number: US-CONCORDIA PHARMACEUTICALS INC.-E2B_00007806

PATIENT
  Age: 46 Year
  Sex: Male

DRUGS (3)
  1. METOPROLOL HYDROCHLOROTHIAZIDE [Suspect]
     Active Substance: HYDROCHLOROTHIAZIDE\METOPROLOL TARTRATE
     Indication: HYPERTENSION
  2. TUMS [Suspect]
     Active Substance: CALCIUM CARBONATE
     Indication: CHEST PAIN
     Route: 048
  3. TUMS [Suspect]
     Active Substance: CALCIUM CARBONATE
     Indication: ABDOMINAL PAIN UPPER
     Route: 048

REACTIONS (4)
  - Milk-alkali syndrome [Recovering/Resolving]
  - Acute kidney injury [Unknown]
  - Bundle branch block left [Recovered/Resolved]
  - Electrocardiogram ST segment elevation [Recovered/Resolved]
